FAERS Safety Report 5526110-3 (Version None)
Quarter: 2007Q4

REPORT INFORMATION
  Report Type: 
  Country: None (occurrence: None)
  Receive Date: 20071120
  Receipt Date: 20071115
  Transmission Date: 20080405
  Serious: Yes (Other)
  Sender: FDA-Public Use
  Company Number: THQ2007A01092

PATIENT
  Age: 28 Year
  Sex: Male

DRUGS (5)
  1. LANSOPRAZOLE [Suspect]
     Dosage: 30 MG (30 MG,1 IN 1 D)
     Route: 048
     Dates: start: 20071017, end: 20071019
  2. TEMAZEPAM [Suspect]
     Dosage: 10 MG (10 MG,1 IN 1 D)
     Route: 048
     Dates: start: 20071019
  3. ASPIRIN [Concomitant]
  4. FUROSEMIDE [Concomitant]
  5. PARACETAMOL [Concomitant]

REACTIONS (4)
  - ERYTHEMA [None]
  - RASH PAPULAR [None]
  - SWELLING FACE [None]
  - VISUAL DISTURBANCE [None]
